FAERS Safety Report 8474360-9 (Version None)
Quarter: 2012Q2

REPORT INFORMATION
  Report Type: 
  Country: None (occurrence: None)
  Receive Date: 20120628
  Receipt Date: 20111026
  Transmission Date: 20120825
  Serious: Yes (Other)
  Sender: FDA-Public Use
  Company Number: US-MYLANLABS-2011S1020388

PATIENT
  Age: 56 Year
  Sex: Female

DRUGS (5)
  1. CLOZAPINE [Suspect]
     Indication: SCHIZOAFFECTIVE DISORDER
     Route: 048
     Dates: end: 20110923
  2. ZOLOFT [Concomitant]
  3. BENADRYL [Concomitant]
  4. CLOZAPINE [Suspect]
     Route: 048
     Dates: end: 20110923
  5. BENZTROPINE MESYLATE [Concomitant]

REACTIONS (3)
  - LEUKOPENIA [None]
  - GRANULOCYTOPENIA [None]
  - AGRANULOCYTOSIS [None]
